FAERS Safety Report 7070610-4 (Version None)
Quarter: 2010Q4

REPORT INFORMATION
  Report Type: 
  Country: None (occurrence: None)
  Receive Date: 20101029
  Receipt Date: 20101022
  Transmission Date: 20110411
  Serious: Yes (Other)
  Sender: FDA-Public Use
  Company Number: CN-PFIZER INC-2010131402

PATIENT

DRUGS (2)
  1. LIPITOR [Suspect]
     Dosage: 20 MG, UNK
  2. PLAVIX [Suspect]
     Dosage: 75 MG, UNK

REACTIONS (1)
  - PLATELET COUNT DECREASED [None]
